FAERS Safety Report 6927770-2 (Version None)
Quarter: 2010Q3

REPORT INFORMATION
  Report Type: 
  Country: None (occurrence: None)
  Receive Date: 20100816
  Receipt Date: 20100816
  Transmission Date: 20110219
  Serious: Yes (Hospitalization)
  Sender: FDA-Public Use
  Company Number: None

PATIENT
  Age: 56 Year
  Sex: Male
  Weight: 110.7 kg

DRUGS (1)
  1. BYETTA [Suspect]
     Indication: DIABETES MELLITUS
     Dosage: 10 MCG BID SQ, STARTED THIS SPRING
     Route: 058
     Dates: start: 20100101

REACTIONS (4)
  - CHILLS [None]
  - PHOTOPHOBIA [None]
  - RENAL FAILURE ACUTE [None]
  - WEIGHT DECREASED [None]
